FAERS Safety Report 23855640 (Version 3)
Quarter: 2024Q3

REPORT INFORMATION
  Report Type: Spontaneous
  Country: JP (occurrence: JP)
  Receive Date: 20240514
  Receipt Date: 20240722
  Transmission Date: 20241017
  Serious: Yes (Life-Threatening, Hospitalization, Other)
  Sender: STRIDES
  Company Number: None

PATIENT
  Age: 14 Year
  Sex: Female
  Weight: 42 kg

DRUGS (6)
  1. PREDNISOLONE [Suspect]
     Active Substance: PREDNISOLONE
     Indication: Disease recurrence
     Dosage: 60 MILLIGRAM, QD
     Route: 048
  2. PREDNISOLONE [Suspect]
     Active Substance: PREDNISOLONE
     Indication: Nephrotic syndrome
     Dosage: 40 MILLIGRAM, QOD (EVERY OTHER DAY)
     Route: 048
  3. PREDNISOLONE [Suspect]
     Active Substance: PREDNISOLONE
     Dosage: 60 MILLIGRAM, QD
     Route: 048
  4. PREDNISOLONE [Suspect]
     Active Substance: PREDNISOLONE
     Dosage: 60 MILLIGRAM, QOD (AFTER FOUR DAYS) (DOSE REDUCED)
     Route: 048
  5. PREDNISOLONE [Suspect]
     Active Substance: PREDNISOLONE
     Dosage: 60 MILLIGRAM, QD (DOSE INCREASED)
     Route: 048
  6. MYCOPHENOLATE MOFETIL [Suspect]
     Active Substance: MYCOPHENOLATE MOFETIL
     Indication: Nephrotic syndrome
     Dosage: UNK
     Route: 065

REACTIONS (9)
  - Cerebral infarction [Recovered/Resolved]
  - Vasogenic cerebral oedema [Recovered/Resolved]
  - Embolic stroke [Recovered/Resolved]
  - Cerebral artery occlusion [Recovered/Resolved]
  - Hypercoagulation [Recovered/Resolved]
  - Embolism [Recovered/Resolved]
  - Cerebral venous sinus thrombosis [Recovered/Resolved]
  - Vena cava thrombosis [Recovered/Resolved]
  - Off label use [Unknown]
